FAERS Safety Report 7398808-6 (Version None)
Quarter: 2011Q2

REPORT INFORMATION
  Report Type: 
  Country: None (occurrence: None)
  Receive Date: 20110407
  Receipt Date: 20110330
  Transmission Date: 20111010
  Serious: Yes (Other)
  Sender: FDA-Public Use
  Company Number: US-RB-024060-11

PATIENT
  Sex: Male

DRUGS (1)
  1. MUCINEX DM [Suspect]
     Route: 048

REACTIONS (5)
  - PARAESTHESIA [None]
  - MUSCLE TWITCHING [None]
  - DRUG ABUSE [None]
  - VOMITING [None]
  - OVERDOSE [None]
